FAERS Safety Report 10393376 (Version 1)
Quarter: 2014Q3

REPORT INFORMATION
  Report Type: Spontaneous
  Country: CA (occurrence: None)
  Receive Date: 20140815
  Receipt Date: 20140815
  Transmission Date: 20150326
  Serious: Yes (Disabling, Other)
  Sender: FDA-Public Use
  Company Number: SYM-2014-24138

PATIENT
  Age: 52 Year
  Sex: Male
  Weight: 70 kg

DRUGS (5)
  1. EFUDEX [Suspect]
     Active Substance: FLUOROURACIL
     Indication: BASAL CELL CARCINOMA
     Dosage: 1 IN 1 D, TOPICAL
     Route: 061
     Dates: start: 20140605, end: 20140618
  2. ISENTRESS [Concomitant]
     Active Substance: RALTEGRAVIR POTASSIUM
  3. LAMIVUDINE ( LAMIVUDINE) TABLET, 100 MG [Concomitant]
     Active Substance: LAMIVUDINE
  4. INTELENCE [Concomitant]
     Active Substance: ETRAVIRINE
  5. ABACAVIR [Concomitant]
     Active Substance: ABACAVIR

REACTIONS (17)
  - Diarrhoea [None]
  - Localised infection [None]
  - Vertigo [None]
  - Hyperhidrosis [None]
  - Hyposmia [None]
  - Suicidal ideation [None]
  - Dihydropyrimidine dehydrogenase deficiency [None]
  - Myalgia [None]
  - Dizziness [None]
  - Pollakiuria [None]
  - Deafness [None]
  - Tinnitus [None]
  - Eye irritation [None]
  - Stomatitis [None]
  - Condition aggravated [None]
  - Hypogeusia [None]
  - Gastrointestinal pain [None]

NARRATIVE: CASE EVENT DATE: 20140613
